FAERS Safety Report 9065700 (Version 3)
Quarter: 2013Q2

REPORT INFORMATION
  Report Type: Spontaneous
  Country: JP (occurrence: JP)
  Receive Date: 20130214
  Receipt Date: 20130402
  Transmission Date: 20140414
  Serious: Yes (Other)
  Sender: FDA-Public Use
  Company Number: JP-JNJFOC-20130206420

PATIENT
  Age: 82 Year
  Sex: Male
  Weight: 69 kg

DRUGS (2)
  1. REMINYL [Suspect]
     Indication: DEMENTIA ALZHEIMER^S TYPE
     Route: 048
     Dates: start: 20130108, end: 20130123
  2. MEVALOTIN [Suspect]
     Indication: LIPID METABOLISM DISORDER
     Route: 048
     Dates: end: 20130123

REACTIONS (1)
  - Rhabdomyolysis [Recovered/Resolved]
